FAERS Safety Report 19496190 (Version 1)
Quarter: 2021Q3

REPORT INFORMATION
  Report Type: Spontaneous
  Country: US (occurrence: US)
  Receive Date: 20210702
  Receipt Date: 20210702
  Transmission Date: 20211014
  Serious: Yes (Hospitalization, Other)
  Sender: FDA-Public Use
  Company Number: None

PATIENT
  Age: 35 Year
  Sex: Male
  Weight: 76.5 kg

DRUGS (5)
  1. TYLENOL [Concomitant]
     Active Substance: ACETAMINOPHEN
  2. IBUPROFEN. [Concomitant]
     Active Substance: IBUPROFEN
  3. FLONASE [Concomitant]
     Active Substance: FLUTICASONE PROPIONATE
  4. ALCOHOL CONSUMPTION [Concomitant]
  5. LEVOFLOXACIN 750MG [Suspect]
     Active Substance: LEVOFLOXACIN
     Indication: SINUSITIS
     Dosage: ?          QUANTITY:5 TABLET(S);?
     Route: 048

REACTIONS (8)
  - Fatigue [None]
  - Asthenia [None]
  - Anxiety [None]
  - Hypertension [None]
  - Pulse abnormal [None]
  - Headache [None]
  - Insomnia [None]
  - Drug ineffective [None]

NARRATIVE: CASE EVENT DATE: 20210626
